FAERS Safety Report 11358727 (Version 1)
Quarter: 2015Q3

REPORT INFORMATION
  Report Type: Spontaneous
  Country: US (occurrence: None)
  Receive Date: 20150716
  Receipt Date: 20150716
  Transmission Date: 20151125
  Serious: Yes (Other)
  Sender: FDA-Public Use
  Company Number: 2015PROUSA04317

PATIENT
  Age: 65 Year
  Sex: Male

DRUGS (2)
  1. PROVENGE [Suspect]
     Active Substance: SIPULEUCEL-T
     Indication: PROSTATE CANCER METASTATIC
     Dosage: 250 ML, SINGLE, INTRAVENOUS
     Route: 042
     Dates: start: 20131216, end: 20131216
  2. ENZALUTAMIDE (ENZALUTAMIDE) [Concomitant]

REACTIONS (2)
  - Prostate cancer recurrent [None]
  - Metastases to bone [None]

NARRATIVE: CASE EVENT DATE: 20150126
